FAERS Safety Report 10551848 (Version 1)
Quarter: 2014Q4

REPORT INFORMATION
  Report Type: Spontaneous
  Country: US (occurrence: None)
  Receive Date: 20141027
  Receipt Date: 20141027
  Transmission Date: 20150529
  Serious: Yes (Other)
  Sender: FDA-Public Use
  Company Number: US-H14001-14-01141

PATIENT
  Age: 63 Year
  Sex: Female
  Weight: 90.72 kg

DRUGS (2)
  1. COUMADIN (WARFARIN SODIUM) (UNKNOWN) (WARFARIN SODIUM) [Concomitant]
  2. PREDNISONE. [Suspect]
     Active Substance: PREDNISONE
     Indication: ALLERGY TO METALS
     Route: 048
     Dates: start: 20141013, end: 20141013

REACTIONS (7)
  - Dyspnoea [None]
  - Abdominal discomfort [None]
  - Fall [None]
  - Vomiting [None]
  - Swollen tongue [None]
  - Dysgeusia [None]
  - Tremor [None]

NARRATIVE: CASE EVENT DATE: 20141013
